FAERS Safety Report 11133511 (Version 2)
Quarter: 2015Q3

REPORT INFORMATION
  Report Type: Spontaneous
  Country: IN (occurrence: IN)
  Receive Date: 20150523
  Receipt Date: 20150818
  Transmission Date: 20151125
  Serious: Yes (Life-Threatening, Hospitalization)
  Sender: FDA-Public Use
  Company Number: IN-ACCORD-030872

PATIENT
  Age: 43 Year
  Sex: Male

DRUGS (2)
  1. FENTANYL. [Interacting]
     Active Substance: FENTANYL
     Indication: PREMEDICATION
     Dosage: 0.83 ?G/KG, IN DILUTION OF 1 ML = 50 ?G
     Route: 042
  2. TRAMADOL/TRAMADOL HYDROCHLORIDE [Suspect]
     Active Substance: TRAMADOL HYDROCHLORIDE
     Indication: PREMEDICATION
     Dosage: 1.25 MG/KG, IN DILUTION OF 1 ML = 20 MG
     Route: 042

REACTIONS (4)
  - Serotonin syndrome [Recovering/Resolving]
  - Ventricular fibrillation [None]
  - Cardiac arrest [Recovering/Resolving]
  - Drug interaction [Unknown]
